FAERS Safety Report 9222505 (Version 1)
Quarter: 2013Q2

REPORT INFORMATION
  Report Type: Spontaneous
  Country: US (occurrence: US)
  Receive Date: 20130410
  Receipt Date: 20130410
  Transmission Date: 20140414
  Serious: Yes (Hospitalization, Disabling, Other)
  Sender: FDA-Public Use
  Company Number: US-SANOFI-AVENTIS-2013SA035501

PATIENT
  Age: 38 Year
  Sex: Male
  Weight: 77.17 kg

DRUGS (8)
  1. AMBIEN [Suspect]
  2. EFFEXOR [Suspect]
  3. WELLBUTRIN [Suspect]
  4. CONCERTA [Suspect]
  5. ATIVAN [Suspect]
  6. DEPAKOTE [Suspect]
  7. TRILEPTAL [Suspect]
  8. LEXAPRO [Suspect]

REACTIONS (8)
  - Atrial fibrillation [Unknown]
  - Myocardial infarction [Unknown]
  - Legal problem [Unknown]
  - Economic problem [Unknown]
  - Adverse event [Unknown]
  - Panic attack [Unknown]
  - Suicide attempt [Unknown]
  - Nasopharyngitis [Unknown]
